FAERS Safety Report 11767188 (Version 1)
Quarter: 2015Q4

REPORT INFORMATION
  Report Type: Spontaneous
  Country: CN (occurrence: CN)
  Receive Date: 20151123
  Receipt Date: 20151123
  Transmission Date: 20160304
  Serious: Yes (Other)
  Sender: FDA-Public Use
  Company Number: CN-OTSUKA-2015_015150

PATIENT
  Age: 77 Year
  Sex: Female

DRUGS (1)
  1. TOLVAPTAN TABLETS [Suspect]
     Active Substance: TOLVAPTAN
     Indication: POLYURIA
     Dosage: UNK
     Route: 065

REACTIONS (2)
  - Hepatocellular injury [Not Recovered/Not Resolved]
  - Hepatic function abnormal [Not Recovered/Not Resolved]

NARRATIVE: CASE EVENT DATE: 20150124
